FAERS Safety Report 10614706 (Version 2)
Quarter: 2015Q1

REPORT INFORMATION
  Report Type: Spontaneous
  Country: AT (occurrence: AT)
  Receive Date: 20141201
  Receipt Date: 20150105
  Transmission Date: 20150720
  Serious: Yes (Hospitalization, Other)
  Sender: FDA-Public Use
  Company Number: AT-AMGEN-AUTSP2014092739

PATIENT
  Age: 51 Year
  Sex: Female

DRUGS (8)
  1. EBETREXAT                          /00113801/ [Concomitant]
     Active Substance: METHOTREXATE SODIUM
     Indication: RHEUMATOID ARTHRITIS
     Dosage: 10 MG FIRST WEEK, 20 MG SECOND WEEK  ALTERNATELY
  2. PREDNISOLONE. [Concomitant]
     Active Substance: PREDNISOLONE
     Indication: RHEUMATOID ARTHRITIS
     Dosage: 5 MG, AS NEEDED
     Route: 048
  3. ENBREL [Suspect]
     Active Substance: ETANERCEPT
     Indication: RHEUMATOID ARTHRITIS
     Dosage: 5 MG, WEEKLY
     Route: 058
     Dates: start: 20131209
  4. PRAM                               /00582602/ [Concomitant]
     Dosage: 20 MG, 1X/DAY
  5. FOLSAN [Concomitant]
     Active Substance: FOLIC ACID
     Dosage: 1 TABLET AT THE THIRD AND FOURTH DAY AFTER THE INTAKE OF METHOTREXATE
  6. CELEBREX [Concomitant]
     Active Substance: CELECOXIB
     Indication: PAIN
     Dosage: 200 MG, AS NEEDED
  7. FERRETAB                           /00023505/ [Concomitant]
     Dosage: 1 DF, UNK
  8. AMLODIPIN                          /00972401/ [Concomitant]
     Active Substance: AMLODIPINE BESYLATE
     Dosage: 10 MG, 1X/DAY

REACTIONS (1)
  - Malignant melanoma [Recovered/Resolved]

NARRATIVE: CASE EVENT DATE: 201410
